FAERS Safety Report 24747708 (Version 1)
Quarter: 2024Q4

REPORT INFORMATION
  Report Type: Spontaneous
  Country: US (occurrence: US)
  Receive Date: 20241218
  Receipt Date: 20241218
  Transmission Date: 20250114
  Serious: No
  Sender: REVANCE THERAPEUTICS
  Company Number: US-REVANCE THERAPEUTICS INC.-US-REV-2024-000560

PATIENT

DRUGS (1)
  1. DAXIBOTULINUMTOXIN A-LANM [Suspect]
     Active Substance: DAXIBOTULINUMTOXIN A-LANM
     Indication: Skin wrinkling
     Dosage: GLABELLA 24 UNITS (8 UNITS AT FRONT OF EACH EYEBROW AND 8 UNITS IN THE MIDDLE OF EYEBROWS)
     Route: 065
     Dates: start: 20240628

REACTIONS (2)
  - No adverse event [Unknown]
  - Underdose [Unknown]

NARRATIVE: CASE EVENT DATE: 20240628
